FAERS Safety Report 23540967 (Version 3)
Quarter: 2024Q1

REPORT INFORMATION
  Report Type: Report from Study
  Country: BE (occurrence: BE)
  Receive Date: 20240219
  Receipt Date: 20240328
  Transmission Date: 20240410
  Serious: Yes (Hospitalization, Other)
  Sender: FDA-Public Use
  Company Number: BE-PHARMAMAR-2024PM000107

PATIENT

DRUGS (9)
  1. LURBINECTEDIN [Suspect]
     Active Substance: LURBINECTEDIN
     Indication: Small cell lung cancer
     Dosage: 3.2 MILLIGRAM/SQ. METER, Q3W
     Route: 042
     Dates: start: 20230818, end: 20240124
  2. DEXPANTHENOL [Concomitant]
     Active Substance: DEXPANTHENOL
     Indication: Dyspepsia
     Dosage: 40 MILLIGRAM, QD
     Route: 048
     Dates: start: 202304
  3. DEXAMETHASONE [Concomitant]
     Active Substance: DEXAMETHASONE
     Indication: Hypersensitivity
     Dosage: 8 MILLIGRAM
     Route: 048
     Dates: start: 20230819
  4. DEXAMETHASONE [Concomitant]
     Active Substance: DEXAMETHASONE
     Indication: Prophylaxis
     Dosage: 8 MILLIGRAM
     Route: 042
     Dates: start: 20240124, end: 20240124
  5. LERCANIDIPINE [Concomitant]
     Active Substance: LERCANIDIPINE
     Indication: Hypertension
     Dosage: 10 MILLIGRAM, PRN
     Route: 048
     Dates: start: 20230826
  6. FENOTEROL HYDROBROMIDE [Concomitant]
     Active Substance: FENOTEROL HYDROBROMIDE
     Indication: Dyspnoea
     Dosage: 1 DOSAGE FORM, PRN
     Dates: start: 20230828
  7. SODIUM BICARBONATE [Concomitant]
     Active Substance: SODIUM BICARBONATE
     Indication: Stomatitis
     Dosage: 1 DOSAGE FORM, PRN
     Route: 048
     Dates: start: 20231024
  8. DAFALGAN [Concomitant]
     Active Substance: ACETAMINOPHEN
     Indication: Back pain
     Dosage: 1 GRAM, PRN
     Route: 048
     Dates: start: 20240104
  9. ONDANSETRON [Concomitant]
     Active Substance: ONDANSETRON
     Indication: Prophylaxis
     Dosage: 8 MILLIGRAM
     Route: 042
     Dates: start: 20240124, end: 20240124

REACTIONS (1)
  - Intestinal obstruction [Recovered/Resolved]

NARRATIVE: CASE EVENT DATE: 20240207
